FAERS Safety Report 8456301-3 (Version None)
Quarter: 2012Q2

REPORT INFORMATION
  Report Type: 
  Country: None (occurrence: None)
  Receive Date: 20120621
  Receipt Date: 20120616
  Transmission Date: 20120825
  Serious: Yes (Death, Other)
  Sender: FDA-Public Use
  Company Number: US-INCYTE CORPORATION-2012IN001076

PATIENT
  Sex: Female

DRUGS (9)
  1. PREDNISONE TAB [Concomitant]
  2. ZOFRAN [Concomitant]
  3. JAKAFI [Suspect]
     Indication: MYELOFIBROSIS
     Dosage: 20 MG, BID
     Route: 048
     Dates: start: 20111201
  4. XANAX [Concomitant]
  5. AMBIEN [Concomitant]
  6. DIFLUCAN [Concomitant]
  7. TOPROL-XL [Concomitant]
  8. SYNTHROID [Concomitant]
  9. PRILOSEC [Concomitant]

REACTIONS (6)
  - CEREBROVASCULAR ACCIDENT [None]
  - WEIGHT DECREASED [None]
  - DEATH [None]
  - ORAL CANDIDIASIS [None]
  - PLATELET COUNT INCREASED [None]
  - ANAEMIA [None]
